FAERS Safety Report 10590641 (Version 8)
Quarter: 2025Q4

REPORT INFORMATION
  Report Type: Spontaneous
  Country: US (occurrence: US)
  Receive Date: 20141118
  Receipt Date: 20251006
  Transmission Date: 20260117
  Serious: Yes (Other)
  Sender: PFIZER
  Company Number: US-PFIZER INC-2014311188

PATIENT
  Age: 3 Year
  Sex: Male
  Weight: 14.059 kg

DRUGS (14)
  1. ELELYSO [Suspect]
     Active Substance: TALIGLUCERASE ALFA
     Indication: Gaucher^s disease type I
     Dosage: 600 UNITS (42 U/KG), EVERY 14 DAYS
     Route: 042
     Dates: start: 20141029
  2. ELELYSO [Suspect]
     Active Substance: TALIGLUCERASE ALFA
     Indication: Gaucher^s disease
     Dosage: UNK
     Route: 042
     Dates: start: 20141111
  3. ELELYSO [Suspect]
     Active Substance: TALIGLUCERASE ALFA
     Dosage: 60 IU/KG, UNK (60 IU/KG 2WEEKS)
     Dates: start: 201410
  4. ELELYSO [Suspect]
     Active Substance: TALIGLUCERASE ALFA
     Dosage: 1200 ML, EVERY 2 WEEKS
  5. ELELYSO [Suspect]
     Active Substance: TALIGLUCERASE ALFA
     Dosage: UNK (TWO (2) INFUSIONS AGO)
     Dates: start: 20180313
  6. ELELYSO [Suspect]
     Active Substance: TALIGLUCERASE ALFA
     Dosage: UNK
     Dates: start: 20180329
  7. ELELYSO [Suspect]
     Active Substance: TALIGLUCERASE ALFA
     Dosage: 1400 IU, EVERY 2 WEEKS
  8. ELELYSO [Suspect]
     Active Substance: TALIGLUCERASE ALFA
     Dosage: 1600 IU (EVERY 2 WEEKS)
  9. ELELYSO [Suspect]
     Active Substance: TALIGLUCERASE ALFA
     Dosage: 1800 IU, EVERY 2 WEEKS (DOSE INCREASED TO 1 VIAL)
  10. ELELYSO [Suspect]
     Active Substance: TALIGLUCERASE ALFA
     Dosage: 2800 IU
  11. ELELYSO [Suspect]
     Active Substance: TALIGLUCERASE ALFA
     Dosage: 3200 IU
  12. ELELYSO [Suspect]
     Active Substance: TALIGLUCERASE ALFA
     Dosage: 3600 IU, EVERY 2 WEEKS
  13. ELELYSO [Suspect]
     Active Substance: TALIGLUCERASE ALFA
     Dosage: 4000 IU, EVERY 2 WEEKS
  14. ELELYSO [Suspect]
     Active Substance: TALIGLUCERASE ALFA
     Dosage: UNK

REACTIONS (14)
  - Vomiting projectile [Recovered/Resolved]
  - Chills [Recovered/Resolved]
  - Excessive eye blinking [Recovered/Resolved]
  - Crying [Recovered/Resolved]
  - Acne [Recovered/Resolved]
  - Flushing [Recovered/Resolved]
  - Therapeutic product effect incomplete [Unknown]
  - Bone pain [Unknown]
  - Weight decreased [Unknown]
  - Pyrexia [Recovered/Resolved]
  - Erythema [Recovered/Resolved]
  - Pain in extremity [Recovered/Resolved]
  - Viral upper respiratory tract infection [Recovered/Resolved]
  - Off label use [Unknown]

NARRATIVE: CASE EVENT DATE: 20140101
